FAERS Safety Report 13134319 (Version 1)
Quarter: 2017Q1

REPORT INFORMATION
  Report Type: Spontaneous
  Country: US (occurrence: US)
  Receive Date: 20170120
  Receipt Date: 20170120
  Transmission Date: 20170428
  Serious: No
  Sender: FDA-Public Use
  Company Number: US-BAYER-2017-011637

PATIENT
  Age: 75 Year
  Sex: Male

DRUGS (2)
  1. STAXYN [Suspect]
     Active Substance: VARDENAFIL HYDROCHLORIDE TRIHYDRATE
     Dosage: UNK
     Route: 048
  2. ALFUZOSIN [Suspect]
     Active Substance: ALFUZOSIN
     Dosage: UNK

REACTIONS (1)
  - Drug prescribing error [None]
